FAERS Safety Report 7937778-6 (Version None)
Quarter: 2011Q4

REPORT INFORMATION
  Report Type: 
  Country: None (occurrence: None)
  Receive Date: 20111123
  Receipt Date: 20111118
  Transmission Date: 20120403
  Serious: Yes (Other)
  Sender: FDA-Public Use
  Company Number: PHHY2011BR101832

PATIENT
  Age: 45 Year
  Sex: Female

DRUGS (1)
  1. STALEVO 100 [Suspect]
     Indication: PARKINSON'S DISEASE
     Dosage: 100/25/200MG, 90 TABLETS A MONTH
     Route: 048

REACTIONS (4)
  - INJURY [None]
  - TOOTH FRACTURE [None]
  - FALL [None]
  - GAIT DISTURBANCE [None]
